FAERS Safety Report 7235833-X (Version None)
Quarter: 2011Q1

REPORT INFORMATION
  Report Type: 
  Country: None (occurrence: None)
  Receive Date: 20110120
  Receipt Date: 20110114
  Transmission Date: 20110831
  Serious: Yes (Death)
  Sender: FDA-Public Use
  Company Number: FR-SANOFI-AVENTIS-2011SA002525

PATIENT
  Age: 62 Year
  Sex: Male

DRUGS (9)
  1. PLAVIX [Suspect]
     Route: 048
     Dates: end: 20101228
  2. SELOKEN [Concomitant]
     Route: 048
     Dates: end: 20101228
  3. ELISOR [Concomitant]
     Route: 048
     Dates: end: 20101228
  4. AMLOR [Concomitant]
     Route: 048
     Dates: end: 20101228
  5. PRAXILENE [Concomitant]
     Route: 048
     Dates: end: 20101228
  6. GLUCOPHAGE [Concomitant]
     Route: 048
     Dates: end: 20101228
  7. LASIX [Concomitant]
     Route: 048
     Dates: end: 20101228
  8. PREVISCAN [Interacting]
     Route: 048
     Dates: end: 20101228
  9. HYTACAND [Concomitant]
     Dosage: DOSE:1 UNIT(S)
     Route: 048
     Dates: end: 20101228

REACTIONS (3)
  - INTERNATIONAL NORMALISED RATIO INCREASED [None]
  - SHOCK HAEMORRHAGIC [None]
  - DRUG INTERACTION [None]
